FAERS Safety Report 14636536 (Version 1)
Quarter: 2018Q1

REPORT INFORMATION
  Report Type: Report from Study
  Country: GB (occurrence: GB)
  Receive Date: 20180314
  Receipt Date: 20180314
  Transmission Date: 20180509
  Serious: Yes (Death, Life-Threatening)
  Sender: FDA-Public Use
  Company Number: GB-JNJFOC-20161216957

PATIENT
  Age: 50 Year
  Sex: Male

DRUGS (2)
  1. BLINDED RIVAROXABAN [Suspect]
     Active Substance: RIVAROXABAN
     Indication: EMBOLISM VENOUS
     Route: 048
     Dates: start: 20161029, end: 20170103
  2. BLINDED RIVAROXABAN [Suspect]
     Active Substance: RIVAROXABAN
     Indication: NEOPLASM MALIGNANT
     Route: 048
     Dates: start: 20161029, end: 20170103

REACTIONS (3)
  - Platelet count decreased [Fatal]
  - Anaemia [Fatal]
  - Upper gastrointestinal haemorrhage [Fatal]

NARRATIVE: CASE EVENT DATE: 20161122
